FAERS Safety Report 20617166 (Version 1)
Quarter: 2022Q1

REPORT INFORMATION
  Report Type: Spontaneous
  Country: GB (occurrence: GB)
  Receive Date: 20220321
  Receipt Date: 20220321
  Transmission Date: 20220423
  Serious: Yes (Other)
  Sender: FDA-Public Use
  Company Number: GB-MHRA-MED-202203081006340910-O4X4O

PATIENT
  Age: 78 Year
  Weight: 74 kg

DRUGS (3)
  1. DULOXETINE HYDROCHLORIDE [Suspect]
     Active Substance: DULOXETINE HYDROCHLORIDE
     Indication: Pain
     Dosage: VARIOUS WITHIN NORMAL RANGE, REDUCING TO 30MG/D
     Route: 065
     Dates: start: 20181120, end: 20200101
  2. CODEINE [Suspect]
     Active Substance: CODEINE
     Indication: Pain
     Dosage: UNK, UNKNOWN
     Route: 065
     Dates: start: 20211001, end: 20211001
  3. ORAMORPH SR SUSTAINED RELEASE [Suspect]
     Active Substance: MORPHINE SULFATE
     Indication: Adverse drug reaction
     Dosage: CANT REMEMBER DATE OR DOSE
     Route: 065

REACTIONS (2)
  - Medication error [Unknown]
  - Constipation [Not Recovered/Not Resolved]
